FAERS Safety Report 8326577-1 (Version None)
Quarter: 2012Q2

REPORT INFORMATION
  Report Type: 
  Country: None (occurrence: None)
  Receive Date: 20120501
  Receipt Date: 20090807
  Transmission Date: 20120825
  Serious: No
  Sender: FDA-Public Use
  Company Number: US-TEVA-2009009346

PATIENT
  Sex: Male

DRUGS (2)
  1. PREDNISONE [Concomitant]
  2. NUVIGIL [Suspect]
     Route: 048
     Dates: start: 20090807

REACTIONS (1)
  - BLOOD GLUCOSE INCREASED [None]
